FAERS Safety Report 17772565 (Version 1)
Quarter: 2020Q2

REPORT INFORMATION
  Report Type: Spontaneous
  Country: DE (occurrence: DE)
  Receive Date: 20200512
  Receipt Date: 20200512
  Transmission Date: 20200714
  Serious: Yes (Hospitalization)
  Sender: FDA-Public Use
  Company Number: DE-TEVA-2020-DE-1235020

PATIENT
  Age: 9 Year
  Sex: Female
  Weight: 29 kg

DRUGS (1)
  1. KINECTEEN 18 MG [Suspect]
     Active Substance: METHYLPHENIDATE
     Indication: ATTENTION DEFICIT HYPERACTIVITY DISORDER
     Dosage: 18 MILLIGRAM DAILY;
     Route: 048

REACTIONS (4)
  - Vomiting [Recovered/Resolved]
  - Tinnitus [Recovered/Resolved]
  - Ear discomfort [Recovered/Resolved]
  - Vision blurred [Recovered/Resolved]

NARRATIVE: CASE EVENT DATE: 20190923
